FAERS Safety Report 22116646 (Version 1)
Quarter: 2023Q1

REPORT INFORMATION
  Report Type: Spontaneous
  Country: US (occurrence: US)
  Receive Date: 20230320
  Receipt Date: 20230320
  Transmission Date: 20230417
  Serious: Yes (Other)
  Sender: FDA-Public Use
  Company Number: US-RIGEL Pharmaceuticals, INC-2023FOS000192

PATIENT
  Sex: Male
  Weight: 73.469 kg

DRUGS (4)
  1. TAVALISSE [Suspect]
     Active Substance: FOSTAMATINIB
     Indication: Immune thrombocytopenia
     Dosage: 150 MG, BID
     Route: 048
     Dates: start: 20220727
  2. CIPROFLOXACIN [Concomitant]
     Active Substance: CIPROFLOXACIN
     Indication: Product used for unknown indication
     Dosage: UNK
     Route: 065
     Dates: start: 20221212, end: 20221226
  3. CEPHALEXIN [Concomitant]
     Active Substance: CEPHALEXIN
     Indication: Product used for unknown indication
     Dosage: UNK
     Route: 065
     Dates: start: 20230126, end: 202302
  4. NITROFURANTOIN [Concomitant]
     Active Substance: NITROFURANTOIN
     Indication: Product used for unknown indication
     Dosage: UNK
     Route: 065
     Dates: start: 20230130, end: 202302

REACTIONS (9)
  - Prostatic operation [Unknown]
  - Dermatitis allergic [Recovered/Resolved]
  - Weight decreased [Unknown]
  - Accident [Unknown]
  - Platelet count [Unknown]
  - Bronchiectasis [Unknown]
  - Pollakiuria [Unknown]
  - Sinusitis [Unknown]
  - Diarrhoea [Unknown]
